FAERS Safety Report 9293254 (Version 2)
Quarter: 2013Q3

REPORT INFORMATION
  Report Type: Spontaneous
  Country: US (occurrence: US)
  Receive Date: 20130516
  Receipt Date: 20130708
  Transmission Date: 20140515
  Serious: No
  Sender: FDA-Public Use
  Company Number: US-009507513-1305USA002081

PATIENT
  Sex: Male

DRUGS (1)
  1. AFRIN [Suspect]
     Dosage: UNK, UNKNOWN
     Route: 045
     Dates: start: 201303

REACTIONS (3)
  - Dependence [Not Recovered/Not Resolved]
  - Nasal discomfort [Not Recovered/Not Resolved]
  - Incorrect drug administration duration [Unknown]
